FAERS Safety Report 17228860 (Version 2)
Quarter: 2020Q2

REPORT INFORMATION
  Report Type: Report from Study
  Country: US (occurrence: US)
  Receive Date: 20200103
  Receipt Date: 20200409
  Transmission Date: 20200713
  Serious: No
  Sender: FDA-Public Use
  Company Number: US-BEH-2019110753

PATIENT
  Age: 39 Year
  Sex: Female
  Weight: 104.31 kg

DRUGS (2)
  1. HAEGARDA [Suspect]
     Active Substance: HUMAN C1-ESTERASE INHIBITOR
     Indication: HEREDITARY ANGIOEDEMA
     Dosage: 6000 12000 3 TO 4 DAYS, BIW
     Route: 058
     Dates: start: 20190412
  2. HAEGARDA [Suspect]
     Active Substance: HUMAN C1-ESTERASE INHIBITOR
     Indication: PROPHYLAXIS

REACTIONS (4)
  - Product dose omission [Unknown]
  - Memory impairment [Unknown]
  - No adverse event [Unknown]
  - Fatigue [Unknown]
